FAERS Safety Report 8251094-7 (Version None)
Quarter: 2012Q2

REPORT INFORMATION
  Report Type: 
  Country: None (occurrence: None)
  Receive Date: 20120402
  Receipt Date: 20120327
  Transmission Date: 20120825
  Serious: Yes (Other)
  Sender: FDA-Public Use
  Company Number: US-BAYER-2012-030423

PATIENT
  Age: 78 Year
  Sex: Female
  Weight: 66 kg

DRUGS (4)
  1. ARICEPT [Concomitant]
  2. NAMENDA [Concomitant]
  3. DIOVAN [Concomitant]
  4. ALEVE (CAPLET) [Suspect]
     Indication: ARTHRITIS
     Dosage: 1 DF, QD
     Route: 048
     Dates: start: 20120324, end: 20120327

REACTIONS (5)
  - GAIT DISTURBANCE [None]
  - ASTHENIA [None]
  - BALANCE DISORDER [None]
  - FEELING ABNORMAL [None]
  - SENSATION OF HEAVINESS [None]
